FAERS Safety Report 5177813-4 (Version None)
Quarter: 2006Q4

REPORT INFORMATION
  Report Type: 
  Country: None (occurrence: None)
  Receive Date: 20061208
  Receipt Date: 20061204
  Transmission Date: 20070319
  Serious: Yes (Hospitalization)
  Sender: FDA-Public Use
  Company Number: THQ2006A01133

PATIENT
  Age: 70 Year
  Sex: Male

DRUGS (2)
  1. LEUPROLIDE ACETATE [Suspect]
     Indication: NEOPLASM PROSTATE
     Dosage: 3.75 MG (3.75 MG,1 IN 1 M)
     Dates: start: 20060701, end: 20061001
  2. FLUTAMIDE [Suspect]
     Indication: NEOPLASM PROSTATE
     Dosage: 750 MG (250MG,3 IN 1 D)
     Dates: start: 20060701, end: 20061001

REACTIONS (3)
  - ASCITES [None]
  - HEPATIC FAILURE [None]
  - OEDEMA PERIPHERAL [None]
